FAERS Safety Report 7229412-8 (Version None)
Quarter: 2011Q1

REPORT INFORMATION
  Report Type: 
  Country: None (occurrence: None)
  Receive Date: 20110117
  Receipt Date: 20110103
  Transmission Date: 20110831
  Serious: Yes (Hospitalization, Congenital Anomaly)
  Sender: FDA-Public Use
  Company Number: A0906256A

PATIENT
  Sex: Male
  Weight: 3 kg

DRUGS (1)
  1. PAXIL CR [Suspect]
     Indication: ANXIETY

REACTIONS (3)
  - BICUSPID AORTIC VALVE [None]
  - PULMONARY ARTERY STENOSIS CONGENITAL [None]
  - DRUG EXPOSURE DURING PREGNANCY [None]
